FAERS Safety Report 25872322 (Version 4)
Quarter: 2025Q4

REPORT INFORMATION
  Report Type: Report from Study
  Country: US (occurrence: US)
  Receive Date: 20251002
  Receipt Date: 20251113
  Transmission Date: 20260118
  Serious: Yes (Other)
  Sender: AMGEN
  Company Number: US-AMGEN-USASL2025192632

PATIENT
  Age: 75 Year
  Sex: Female

DRUGS (11)
  1. PROLIA [Suspect]
     Active Substance: DENOSUMAB
     Indication: Osteoporosis
     Dosage: 60 MILLIGRAM, Q6MO
     Route: 058
     Dates: start: 202011, end: 202312
  2. VITAMIN D3 [Concomitant]
     Active Substance: CHOLECALCIFEROL
     Dosage: UNK
     Route: 065
  3. VITAMIN D3 [Concomitant]
     Active Substance: CHOLECALCIFEROL
     Dosage: UNK UNK, UNK
     Route: 065
  4. VITAMIN D3 [Concomitant]
     Active Substance: CHOLECALCIFEROL
     Route: 065
  5. CALCIUM [Concomitant]
     Active Substance: CALCIUM
  6. CALCIUM [Concomitant]
     Active Substance: CALCIUM
     Route: 058
  7. CALCIUM [Concomitant]
     Active Substance: CALCIUM
     Route: 058
  8. ESOMEPRAZOLE [Concomitant]
     Active Substance: ESOMEPRAZOLE
     Indication: Gastrooesophageal reflux disease
     Route: 058
  9. ESOMEPRAZOLE [Concomitant]
     Active Substance: ESOMEPRAZOLE
     Route: 058
  10. VITAMIN D [Concomitant]
     Active Substance: VITAMIN D NOS
     Route: 058
  11. VITAMIN D [Concomitant]
     Active Substance: VITAMIN D NOS
     Route: 058

REACTIONS (14)
  - Spinal fracture [Recovered/Resolved]
  - Multiple fractures [Unknown]
  - Chronic kidney disease [Unknown]
  - Myalgia [Unknown]
  - Arthralgia [Unknown]
  - Bronchitis [Unknown]
  - Urinary tract infection [Unknown]
  - Drug ineffective [Unknown]
  - Foot fracture [Recovered/Resolved]
  - Drug resistance [Unknown]
  - Gait disturbance [Unknown]
  - Sleep disorder [Unknown]
  - Blood pressure increased [Recovered/Resolved]
  - Pain [Unknown]

NARRATIVE: CASE EVENT DATE: 20220101
